FAERS Safety Report 4610389-6 (Version None)
Quarter: 2005Q1

REPORT INFORMATION
  Report Type: 
  Country: None (occurrence: None)
  Receive Date: 20050301
  Receipt Date: 20041229
  Transmission Date: 20050727
  Serious: No
  Sender: FDA-Public Use
  Company Number: WAES 0412USA03266

PATIENT
  Age: 70 Year
  Sex: Male

DRUGS (9)
  1. ZETIA [Suspect]
     Indication: BLOOD CHOLESTEROL INCREASED
     Dosage: 10 MG/DAILY/PO
     Route: 048
     Dates: start: 20040729
  2. COREG [Concomitant]
  3. DIOVAN [Concomitant]
  4. NIASPAN [Concomitant]
  5. NORVASC [Concomitant]
  6. PLAVIX [Concomitant]
  7. PRAVACHOL [Concomitant]
  8. FUROSEMIDE [Concomitant]
  9. POTASSIUM (UNSPECIFIED) [Concomitant]

REACTIONS (5)
  - ABDOMINAL PAIN [None]
  - ASTHENIA [None]
  - FLATULENCE [None]
  - MYALGIA [None]
  - POLLAKIURIA [None]
